FAERS Safety Report 4335367-6 (Version None)
Quarter: 2004Q2

REPORT INFORMATION
  Report Type: 
  Country: None (occurrence: None)
  Receive Date: 20040406
  Receipt Date: 20040322
  Transmission Date: 20050107
  Serious: Yes (Hospitalization, Other)
  Sender: FDA-Public Use
  Company Number: US-JNJFOC-20040101016

PATIENT
  Age: 74 Year
  Sex: Female
  Weight: 51.9369 kg

DRUGS (16)
  1. REMICADE [Suspect]
     Indication: RHEUMATOID ARTHRITIS
     Dosage: SEE IMAGE
     Route: 042
     Dates: start: 20000101, end: 20020101
  2. REMICADE [Suspect]
     Indication: RHEUMATOID ARTHRITIS
     Dosage: SEE IMAGE
     Route: 042
     Dates: start: 20020101, end: 20020201
  3. CELEBREX [Concomitant]
  4. FOLIC ACID [Concomitant]
  5. METHOTREXATE [Concomitant]
  6. PREDNISONE TAB [Concomitant]
  7. MEDROXYPROGESTERONE [Concomitant]
  8. ESTRADIOL [Concomitant]
  9. OSCAL (CALCIUM CARBONATE) [Concomitant]
  10. GERITOL [Concomitant]
  11. FOSAMAX [Concomitant]
  12. LOSEC (OMEPRAZOLE) [Concomitant]
  13. PROTONIX [Concomitant]
  14. PROMETHAZINE [Concomitant]
  15. METOCLOPRAMIDE [Concomitant]
  16. ZOLOFT [Concomitant]

REACTIONS (18)
  - ACUTE RESPIRATORY FAILURE [None]
  - AMNESIA [None]
  - BLOOD CALCIUM DECREASED [None]
  - CARDIOMYOPATHY [None]
  - CHRONIC OBSTRUCTIVE AIRWAYS DISEASE [None]
  - CONFUSIONAL STATE [None]
  - CYTOMEGALOVIRUS TEST POSITIVE [None]
  - DEPRESSION [None]
  - ELECTROENCEPHALOGRAM ABNORMAL [None]
  - GASTROOESOPHAGEAL REFLUX DISEASE [None]
  - INAPPROPRIATE ANTIDIURETIC HORMONE SECRETION [None]
  - MENINGITIS TUBERCULOUS [None]
  - NAUSEA [None]
  - PARANOIA [None]
  - PNEUMONIA [None]
  - PSYCHOTIC DISORDER [None]
  - SYSTEMIC LUPUS ERYTHEMATOSUS [None]
  - VOMITING [None]
